FAERS Safety Report 5872901-9 (Version None)
Quarter: 2008Q3

REPORT INFORMATION
  Report Type: 
  Country: None (occurrence: None)
  Receive Date: 20080903
  Receipt Date: 20080825
  Transmission Date: 20090109
  Serious: Yes (Other)
  Sender: FDA-Public Use
  Company Number: FEI2008-1581

PATIENT
  Age: 38 Year
  Sex: Female
  Weight: 108.8633 kg

DRUGS (2)
  1. PARAGARD T 380A [Suspect]
     Indication: CONTRACEPTION
     Dosage: INTRA-UTERINE
     Route: 015
     Dates: start: 19970101
  2. PRENATAL VITAMINS (PRENATAL VITAMINS /01549301/) [Concomitant]

REACTIONS (4)
  - ANAEMIA [None]
  - INTRA-UTERINE CONTRACEPTIVE DEVICE EXPELLED [None]
  - MENORRHAGIA [None]
  - UTERINE LEIOMYOMA [None]
